FAERS Safety Report 25210788 (Version 2)
Quarter: 2025Q3

REPORT INFORMATION
  Report Type: Spontaneous
  Country: US (occurrence: US)
  Receive Date: 20250417
  Receipt Date: 20250825
  Transmission Date: 20251020
  Serious: No
  Sender: ABBVIE
  Company Number: US-ABBVIE-6224556

PATIENT

DRUGS (1)
  1. RINVOQ [Suspect]
     Active Substance: UPADACITINIB
     Indication: Paternal exposure timing unspecified
     Route: 064

REACTIONS (4)
  - Foetal exposure during pregnancy [Unknown]
  - Flatulence [Recovering/Resolving]
  - Acne infantile [Recovered/Resolved]
  - Teething [Not Recovered/Not Resolved]

NARRATIVE: CASE EVENT DATE: 20250101
